FAERS Safety Report 19392846 (Version 1)
Quarter: 2021Q2

REPORT INFORMATION
  Report Type: Spontaneous
  Country: US (occurrence: US)
  Receive Date: 20210608
  Receipt Date: 20210608
  Transmission Date: 20210717
  Serious: Yes (Other)
  Sender: FDA-Public Use
  Company Number: None

PATIENT
  Age: 53 Year
  Sex: Female
  Weight: 90.26 kg

DRUGS (2)
  1. LORAZEPAM 2 MG [Suspect]
     Active Substance: LORAZEPAM
     Indication: SEIZURE
     Dosage: 2 1/2 MG 2 1/2 X DAILY ORAL
     Route: 048
     Dates: start: 20180203
  2. LORAZEPAM 2 MG [Suspect]
     Active Substance: LORAZEPAM
     Indication: PANIC DISORDER
     Dosage: 2 1/2 MG 2 1/2 X DAILY ORAL
     Route: 048
     Dates: start: 20180203

REACTIONS (4)
  - Product substitution issue [None]
  - Product measured potency issue [None]
  - Condition aggravated [None]
  - Drug ineffective [None]

NARRATIVE: CASE EVENT DATE: 20180328
